FAERS Safety Report 19446722 (Version 1)
Quarter: 2021Q2

REPORT INFORMATION
  Report Type: Spontaneous
  Country: US (occurrence: US)
  Receive Date: 20210620
  Receipt Date: 20210620
  Transmission Date: 20210717
  Serious: Yes (Life-Threatening, Hospitalization, Disabling)
  Sender: FDA-Public Use
  Company Number: None

PATIENT
  Age: 68 Year
  Sex: Female
  Weight: 78.75 kg

DRUGS (1)
  1. FLAGYL [Suspect]
     Active Substance: METRONIDAZOLE\METRONIDAZOLE HYDROCHLORIDE
     Indication: GASTROINTESTINAL PERFORATION
     Dosage: ?          OTHER ROUTE:INTRAVENOUS (IV?
     Route: 042
     Dates: end: 20210111

REACTIONS (6)
  - Neuralgia [None]
  - Rash [None]
  - Neuropathy peripheral [None]
  - Dyspnoea [None]
  - Vomiting [None]
  - Swelling [None]

NARRATIVE: CASE EVENT DATE: 20201228
